FAERS Safety Report 7664421-6 (Version None)
Quarter: 2011Q3

REPORT INFORMATION
  Report Type: 
  Country: None (occurrence: None)
  Receive Date: 20110806
  Receipt Date: 20110217
  Transmission Date: 20111222
  Serious: No
  Sender: FDA-Public Use
  Company Number: US-ABBOTT-11P-163-0705798-00

PATIENT
  Sex: Female
  Weight: 74.91 kg

DRUGS (16)
  1. DILTIAZEM [Concomitant]
     Indication: ARRHYTHMIA
  2. BIOTIN [Concomitant]
     Indication: PRODUCT USED FOR UNKNOWN INDICATION
  3. LASIX [Concomitant]
     Indication: JOINT SWELLING
  4. CALCIUM ACETATE [Concomitant]
     Indication: PRODUCT USED FOR UNKNOWN INDICATION
  5. FOLIC ACID [Concomitant]
     Indication: PRODUCT USED FOR UNKNOWN INDICATION
  6. NIASPAN [Suspect]
     Indication: BLOOD CHOLESTEROL INCREASED
     Dates: start: 20101206, end: 20110214
  7. LISINOPRIL [Concomitant]
     Indication: CARDIAC VALVE DISEASE
  8. PRILOSEC [Concomitant]
     Indication: DYSPEPSIA
  9. MELOXICAM [Concomitant]
     Indication: ARTHRITIS
  10. ASPIRIN [Concomitant]
     Indication: PROPHYLAXIS
  11. LYRICA [Concomitant]
     Indication: BACK PAIN
  12. XOLAIR [Concomitant]
     Indication: ASTHMA
  13. CRESTOR [Concomitant]
     Indication: BLOOD CHOLESTEROL INCREASED
  14. DILTIAZEM [Concomitant]
     Indication: CARDIAC VALVE DISEASE
  15. SINGULAIR [Concomitant]
     Indication: ASTHMA
  16. ADVAIR DISKUS 100/50 [Concomitant]
     Indication: ASTHMA

REACTIONS (3)
  - FLUSHING [None]
  - JOINT SWELLING [None]
  - MIDDLE INSOMNIA [None]
